FAERS Safety Report 5463860-1 (Version None)
Quarter: 2007Q3

REPORT INFORMATION
  Report Type: 
  Country: None (occurrence: None)
  Receive Date: 20070817
  Receipt Date: 20070724
  Transmission Date: 20080115
  Serious: Yes (Other)
  Sender: FDA-Public Use
  Company Number: 2006091580

PATIENT
  Age: 40 Year
  Sex: Male
  Weight: 39 kg

DRUGS (1)
  1. PREDNISONE TAB [Suspect]
     Indication: ASTHMA
     Dosage: APPROXIMATELY 1 YEAR

REACTIONS (1)
  - ASPERGILLOSIS [None]
